FAERS Safety Report 6250507-X (Version None)
Quarter: 2009Q2

REPORT INFORMATION
  Report Type: 
  Country: None (occurrence: None)
  Receive Date: 20090630
  Receipt Date: 20090618
  Transmission Date: 20091009
  Serious: Yes (Other)
  Sender: FDA-Public Use
  Company Number: SI-ROCHE-639360

PATIENT
  Sex: Female

DRUGS (5)
  1. MIRCERA [Suspect]
     Route: 042
     Dates: start: 20071201
  2. MIRCERA [Suspect]
     Route: 042
  3. BLOXAN [Concomitant]
     Dosage: DOSE REPORTED: 2 X 25 MG.
  4. AMLODIPINE [Concomitant]
  5. CALCIUM CARBONATE [Concomitant]
     Dosage: DOSE REPORTED: 3 X 1/2 TBL.

REACTIONS (1)
  - BLADDER CANCER [None]
